FAERS Safety Report 5487597-8 (Version None)
Quarter: 2007Q4

REPORT INFORMATION
  Report Type: 
  Country: None (occurrence: None)
  Receive Date: 20071016
  Receipt Date: 20071008
  Transmission Date: 20080405
  Serious: Yes (Other)
  Sender: FDA-Public Use
  Company Number: US-ELI_LILLY_AND_COMPANY-US200710001906

PATIENT
  Age: 68 Year
  Sex: Male

DRUGS (6)
  1. HUMULIN 70/30 [Suspect]
     Dosage: 20 U, UNK
     Dates: start: 20071007
  2. HUMULIN 70/30 [Suspect]
     Dosage: 15 U, UNK
     Dates: start: 20071008
  3. ASPIRIN [Concomitant]
  4. SIMVASTATIN [Concomitant]
  5. ENALAPRIL MALEATE [Concomitant]
  6. NIASPAN [Concomitant]

REACTIONS (2)
  - ASTHENIA [None]
  - LOSS OF CONSCIOUSNESS [None]
